FAERS Safety Report 7883168-4 (Version None)
Quarter: 2011Q4

REPORT INFORMATION
  Report Type: 
  Country: None (occurrence: None)
  Receive Date: 20111101
  Receipt Date: 20111101
  Transmission Date: 20120403
  Serious: Yes (Hospitalization)
  Sender: FDA-Public Use
  Company Number: None

PATIENT
  Sex: Male
  Weight: 90.2 kg

DRUGS (3)
  1. ERBITUX [Suspect]
     Dosage: 1300 MG
  2. CISPLATIN [Suspect]
     Dosage: 150 MG
  3. TAXOL [Suspect]
     Dosage: 360 MG

REACTIONS (3)
  - DEVICE RELATED INFECTION [None]
  - PULMONARY EMBOLISM [None]
  - STAPHYLOCOCCAL INFECTION [None]
